FAERS Safety Report 9387866 (Version 2)
Quarter: 2013Q3

REPORT INFORMATION
  Report Type: Spontaneous
  Country: DE (occurrence: DE)
  Receive Date: 20130708
  Receipt Date: 20130801
  Transmission Date: 20140515
  Serious: Yes (Death, Other)
  Sender: FDA-Public Use
  Company Number: DE-CELGENEUS-062-21880-13064329

PATIENT
  Sex: 0

DRUGS (4)
  1. REVLIMID [Suspect]
     Indication: PLASMA CELL MYELOMA
     Dosage: 10-25MG
     Route: 048
     Dates: start: 199701, end: 201301
  2. DEXAMETHASONE [Concomitant]
     Indication: PLASMA CELL MYELOMA
     Route: 065
     Dates: start: 199701, end: 201301
  3. BISPHOSPHONATES [Concomitant]
     Indication: PROPHYLAXIS
     Route: 065
  4. ANTITHROMBOTIC AGENTS [Concomitant]
     Indication: PROPHYLAXIS
     Route: 065

REACTIONS (15)
  - Sepsis [Fatal]
  - Neutropenia [Unknown]
  - Thrombocytopenia [Unknown]
  - Anaemia [Unknown]
  - Embolism venous [Unknown]
  - Renal failure [Unknown]
  - Plasma cell myeloma [Unknown]
  - Toxicity to various agents [Unknown]
  - Asthenia [Unknown]
  - Neuropathy peripheral [Unknown]
  - Infection [Unknown]
  - Pyrexia [Unknown]
  - Muscle spasms [Unknown]
  - Fatigue [Unknown]
  - Therapeutic response decreased [Unknown]
